FAERS Safety Report 9887563 (Version 2)
Quarter: 2014Q1

REPORT INFORMATION
  Report Type: Spontaneous
  Country: US (occurrence: US)
  Receive Date: 20140211
  Receipt Date: 20140214
  Transmission Date: 20141002
  Serious: Yes (Other)
  Sender: FDA-Public Use
  Company Number: US-TEVA-461675USA

PATIENT
  Sex: Female

DRUGS (1)
  1. ATENOLOL [Suspect]

REACTIONS (2)
  - Choking [Unknown]
  - Dyspnoea [Unknown]
